FAERS Safety Report 8590669-2 (Version None)
Quarter: 2012Q3

REPORT INFORMATION
  Report Type: 
  Country: None (occurrence: None)
  Receive Date: 20120731
  Receipt Date: 20120719
  Transmission Date: 20120928
  Serious: Yes (Life-Threatening, Hospitalization, Other)
  Sender: FDA-Public Use
  Company Number: 2012MA008471

PATIENT
  Age: 64 Year
  Sex: Female

DRUGS (1)
  1. FEVERALL [Suspect]
     Dosage: 100 G

REACTIONS (10)
  - HYPOTHERMIA [None]
  - RHABDOMYOLYSIS [None]
  - BLOOD PRESSURE DECREASED [None]
  - COMA [None]
  - BRADYARRHYTHMIA [None]
  - ELECTROCARDIOGRAM QRS COMPLEX PROLONGED [None]
  - HEPATITIS TOXIC [None]
  - LOSS OF CONSCIOUSNESS [None]
  - METABOLIC ACIDOSIS [None]
  - TOXICITY TO VARIOUS AGENTS [None]
